FAERS Safety Report 8962200 (Version 2)
Quarter: 2014Q2

REPORT INFORMATION
  Report Type: Report from Study
  Country: US (occurrence: US)
  Receive Date: 20121212
  Receipt Date: 20131018
  Transmission Date: 20141212
  Serious: Yes (Hospitalization)
  Sender: FDA-Public Use
  Company Number: US-PFIZER INC-2012308161

PATIENT
  Age: 77 Year
  Sex: Male

DRUGS (19)
  1. SOLU-MEDROL [Suspect]
     Dosage: 100MG
     Route: 042
  2. PLACEBO [Suspect]
     Indication: RHEUMATOID ARTHRITIS
     Dosage: UNK
     Route: 042
     Dates: start: 20071206
  3. COUMADIN [Suspect]
     Indication: DEEP VEIN THROMBOSIS
  4. LOVENOX [Suspect]
     Indication: DEEP VEIN THROMBOSIS
  5. METHOTREXATE [Concomitant]
     Dosage: 7.5 MG, WEEKLY
     Dates: start: 200708
  6. CATAPRES [Concomitant]
     Dosage: 0.7MG, UNK
     Dates: start: 200708
  7. AVAPRO [Concomitant]
     Dosage: 300MG, UNK
     Dates: start: 200606
  8. PROTONIX [Concomitant]
     Dosage: 40MG, UNK
     Dates: start: 1999
  9. PROZAC [Concomitant]
     Dosage: 20MG, UNK
     Dates: start: 1992
  10. FOLIC ACID [Concomitant]
     Dosage: 1MG, UNK
     Dates: start: 200708
  11. NORVASC [Concomitant]
     Dosage: 10MG, UNK
     Dates: start: 200611
  12. PREMARIN [Concomitant]
     Dosage: 0.3MG, UNK
     Dates: start: 2003
  13. GLUCOPHAGE [Concomitant]
     Dosage: 500MG, UNK
     Dates: start: 1998
  14. PREDNISONE [Concomitant]
     Dosage: 10MG, UNK
     Dates: start: 2006
  15. PREDNISONE [Concomitant]
     Dosage: DOSE TEMPORARILY INCREASED.
  16. METOPROLOL [Concomitant]
     Dosage: 25MG, UNK
     Dates: start: 200707
  17. IRON [Concomitant]
     Dosage: 325MG, UNK
     Dates: start: 200603
  18. PROPOXYPHENE [Concomitant]
     Dosage: TDD REPORTED AS 100/650
     Dates: start: 2005
  19. GLIPIZIDE [Concomitant]
     Dosage: 10MG, UNK
     Dates: start: 20080718

REACTIONS (2)
  - Pneumonia [Recovered/Resolved]
  - Toxicity to various agents [Recovered/Resolved]
